FAERS Safety Report 22059989 (Version 1)
Quarter: 2023Q1

REPORT INFORMATION
  Report Type: Spontaneous
  Country: US (occurrence: US)
  Receive Date: 20230303
  Receipt Date: 20230303
  Transmission Date: 20230418
  Serious: No
  Sender: FDA-Public Use
  Company Number: US-BIOGEN-2022BI01095976

PATIENT
  Sex: Female

DRUGS (1)
  1. VUMERITY [Suspect]
     Active Substance: DIROXIMEL FUMARATE
     Indication: Multiple sclerosis
     Route: 050
     Dates: start: 20220208, end: 20230222

REACTIONS (6)
  - COVID-19 [Unknown]
  - Heart rate irregular [Unknown]
  - Memory impairment [Unknown]
  - Illness anxiety disorder [Unknown]
  - Migraine [Unknown]
  - White blood cell count decreased [Not Recovered/Not Resolved]
